FAERS Safety Report 8724842 (Version 2)
Quarter: 2015Q2

REPORT INFORMATION
  Report Type: Report from Study
  Country: US (occurrence: US)
  Receive Date: 20120815
  Receipt Date: 20150624
  Transmission Date: 20150821
  Serious: Yes (Other)
  Sender: FDA-Public Use
  Company Number: US-ROCHE-1100418

PATIENT
  Age: 26 Year
  Sex: Female

DRUGS (8)
  1. ERYTHROMYCIN. [Concomitant]
     Active Substance: ERYTHROMYCIN
  2. BRETYLIUM [Concomitant]
  3. INSULIN [Concomitant]
     Active Substance: INSULIN NOS
  4. PRONESTYL [Concomitant]
     Active Substance: PROCAINAMIDE HYDROCHLORIDE
  5. LIDOCAINE. [Concomitant]
     Active Substance: LIDOCAINE
  6. ACTIVASE [Suspect]
     Active Substance: ALTEPLASE
     Indication: ACUTE MYOCARDIAL INFARCTION
     Route: 065
  7. ATROPIN [Concomitant]
  8. PRONESTYL [Concomitant]
     Active Substance: PROCAINAMIDE HYDROCHLORIDE

REACTIONS (1)
  - Blood potassium decreased [Unknown]
